FAERS Safety Report 5092547-2 (Version None)
Quarter: 2006Q3

REPORT INFORMATION
  Report Type: 
  Country: None (occurrence: None)
  Receive Date: 20060830
  Receipt Date: 20060818
  Transmission Date: 20061208
  Serious: Yes (Hospitalization)
  Sender: FDA-Public Use
  Company Number: SE-JNJFOC-20060801556

PATIENT
  Age: 75 Year
  Sex: Female

DRUGS (13)
  1. TAVANIC [Suspect]
     Indication: URINARY TRACT INFECTION
     Route: 048
  2. PAROXETINE HCL [Concomitant]
     Route: 065
  3. INSULATARD NPH HUMAN [Concomitant]
     Route: 065
  4. LIPITOR [Concomitant]
     Route: 065
  5. METFORMIN HCL [Concomitant]
     Route: 065
  6. NITROMEX [Concomitant]
     Route: 065
  7. ACETAMINOPHEN [Concomitant]
     Route: 065
  8. STESOLID [Concomitant]
     Route: 065
  9. IMPUGAN [Concomitant]
     Route: 065
  10. LOMIR [Concomitant]
     Route: 065
  11. IMDUR [Concomitant]
     Route: 065
  12. TROMBYL [Concomitant]
     Route: 065
  13. SPIRONOLAKTON [Concomitant]
     Route: 065

REACTIONS (1)
  - CHOLESTASIS [None]
